FAERS Safety Report 16955725 (Version 1)
Quarter: 2019Q4

REPORT INFORMATION
  Report Type: Report from Study
  Country: IT (occurrence: IT)
  Receive Date: 20191024
  Receipt Date: 20191024
  Transmission Date: 20200122
  Serious: Yes (Hospitalization)
  Sender: FDA-Public Use
  Company Number: IT-TEVA-2019-IT-1126652

PATIENT
  Age: 52 Year
  Sex: Male

DRUGS (2)
  1. AMGEVITA 20 MG SOLUTION FOR INJECTION IN PRE-FILLED SYRINGE [Suspect]
     Active Substance: ADALIMUMAB
     Indication: PSORIATIC ARTHROPATHY
     Dosage: 40 MILLIGRAM
     Route: 058
     Dates: start: 20190618, end: 20190826
  2. LEFLUNOMIDE. [Suspect]
     Active Substance: LEFLUNOMIDE
     Indication: PSORIATIC ARTHROPATHY
     Dosage: 20 MILLIGRAM
     Route: 048
     Dates: start: 20190806, end: 20190826

REACTIONS (3)
  - Rash pruritic [Recovering/Resolving]
  - Granulomatous dermatitis [Recovering/Resolving]
  - Urticarial vasculitis [Recovering/Resolving]

NARRATIVE: CASE EVENT DATE: 20190809
